FAERS Safety Report 6524730-0 (Version None)
Quarter: 2009Q4

REPORT INFORMATION
  Report Type: 
  Country: None (occurrence: None)
  Receive Date: 20091222
  Receipt Date: 20091208
  Transmission Date: 20100525
  Serious: Yes (Hospitalization)
  Sender: FDA-Public Use
  Company Number: 1000010713

PATIENT
  Age: 79 Year
  Sex: Male

DRUGS (6)
  1. MEMANTINE HCL [Suspect]
     Indication: DEMENTIA
     Dosage: 20 MG (10 MG, 2 IN 1 D), ORAL
     Route: 048
     Dates: start: 20040101, end: 20090805
  2. MEMANTINE HCL [Suspect]
     Indication: PARKINSON'S DISEASE
     Dosage: 20 MG (10 MG, 2 IN 1 D), ORAL
     Route: 048
     Dates: start: 20040101, end: 20090805
  3. SINEMET [Concomitant]
  4. MODOPAR [Concomitant]
  5. ATHYMIL [Concomitant]
  6. SIFROL [Concomitant]

REACTIONS (1)
  - PANCREATITIS ACUTE [None]
